FAERS Safety Report 12948708 (Version 1)
Quarter: 2016Q4

REPORT INFORMATION
  Report Type: Spontaneous
  Country: US (occurrence: US)
  Receive Date: 20161117
  Receipt Date: 20161117
  Transmission Date: 20170207
  Serious: No
  Sender: FDA-Public Use
  Company Number: US-ELI_LILLY_AND_COMPANY-US201603006262

PATIENT
  Age: 78 Year
  Sex: Male

DRUGS (5)
  1. TADALAFIL [Suspect]
     Active Substance: TADALAFIL
     Dosage: 5 MG, QD
  2. FINASTERIDE. [Concomitant]
     Active Substance: FINASTERIDE
  3. ASPIRIN                            /00002701/ [Concomitant]
     Active Substance: ASPIRIN
  4. FLOMAX [Suspect]
     Active Substance: TAMSULOSIN HYDROCHLORIDE
     Dosage: UNK
  5. OXYBUTYNIN [Suspect]
     Active Substance: OXYBUTYNIN

REACTIONS (2)
  - Sinus congestion [Not Recovered/Not Resolved]
  - Wrong technique in product usage process [Unknown]
